FAERS Safety Report 16514850 (Version 3)
Quarter: 2019Q3

REPORT INFORMATION
  Report Type: Spontaneous
  Country: US (occurrence: US)
  Receive Date: 20190702
  Receipt Date: 20190819
  Transmission Date: 20191004
  Serious: Yes (Other)
  Sender: FDA-Public Use
  Company Number: US-PFIZER INC-2019271327

PATIENT
  Age: 74 Year
  Sex: Female
  Weight: 71 kg

DRUGS (4)
  1. ACTEMRA [Concomitant]
     Active Substance: TOCILIZUMAB
  2. SIMPONI [Concomitant]
     Active Substance: GOLIMUMAB
  3. REMICADE [Concomitant]
     Active Substance: INFLIXIMAB
  4. XELJANZ XR [Suspect]
     Active Substance: TOFACITINIB CITRATE
     Indication: RHEUMATOID ARTHRITIS
     Dosage: 11 MG, 1X/DAY
     Route: 048
     Dates: start: 201901, end: 20190620

REACTIONS (6)
  - Oropharyngeal pain [Recovered/Resolved]
  - Respiratory tract infection [Recovering/Resolving]
  - Pyrexia [Unknown]
  - Productive cough [Recovering/Resolving]
  - Chronic obstructive pulmonary disease [Unknown]
  - Bacterial infection [Unknown]

NARRATIVE: CASE EVENT DATE: 201906
